FAERS Safety Report 5110070-3 (Version None)
Quarter: 2006Q3

REPORT INFORMATION
  Report Type: 
  Country: None (occurrence: None)
  Receive Date: 20060919
  Receipt Date: 20060919
  Transmission Date: 20061208
  Serious: Yes (Other)
  Sender: FDA-Public Use
  Company Number: None

PATIENT
  Sex: Male
  Weight: 95.2554 kg

DRUGS (2)
  1. VERAPAMIL [Suspect]
     Indication: HYPERTENSION
     Dosage: 240 MG   PO   (DURATION: FOUR MONTHS 11 YRS AGO)
     Route: 048
  2. VERAPAMIL [Suspect]
     Indication: VENTRICULAR ARRHYTHMIA
     Dosage: 240 MG   PO   (DURATION: FOUR MONTHS 11 YRS AGO)
     Route: 048

REACTIONS (3)
  - BLOOD PRESSURE INADEQUATELY CONTROLLED [None]
  - PALPITATIONS [None]
  - PHARMACEUTICAL PRODUCT COMPLAINT [None]
